FAERS Safety Report 17665387 (Version 1)
Quarter: 2020Q2

REPORT INFORMATION
  Report Type: Spontaneous
  Country: US (occurrence: US)
  Receive Date: 20200414
  Receipt Date: 20200414
  Transmission Date: 20200713
  Serious: No
  Sender: FDA-Public Use
  Company Number: US-BAYER-2020-055762

PATIENT
  Sex: Female

DRUGS (2)
  1. CIPRO [Suspect]
     Active Substance: CIPROFLOXACIN HYDROCHLORIDE
     Indication: MYCOPLASMA INFECTION
     Dosage: 15 MG/KG, BID
     Route: 042
  2. AVELOX [Suspect]
     Active Substance: MOXIFLOXACIN HYDROCHLORIDE
     Indication: MYCOPLASMA INFECTION
     Dosage: 10 MG/KG, QD
     Route: 042

REACTIONS (3)
  - Off label use [None]
  - Product administered to patient of inappropriate age [None]
  - Product use in unapproved indication [None]
